FAERS Safety Report 4465443-9 (Version None)
Quarter: 2004Q4

REPORT INFORMATION
  Report Type: 
  Country: None (occurrence: None)
  Receive Date: 20041004
  Receipt Date: 20040810
  Transmission Date: 20050328
  Serious: Yes (Other)
  Sender: FDA-Public Use
  Company Number: CN-GLAXOSMITHKLINE-B0346897A

PATIENT
  Age: 19 Year
  Sex: Male
  Weight: 80 kg

DRUGS (4)
  1. HEPTODIN [Suspect]
     Indication: HEPATIC CIRRHOSIS
     Dosage: 100MG PER DAY
     Route: 048
     Dates: start: 20031001
  2. HALOPERIDOL [Concomitant]
     Route: 048
     Dates: start: 20040511
  3. BENZHEXOL [Concomitant]
     Route: 048
     Dates: start: 20040511
  4. RISPERIDONE [Concomitant]
     Route: 048
     Dates: start: 20040723

REACTIONS (6)
  - AGGRESSION [None]
  - ALANINE AMINOTRANSFERASE INCREASED [None]
  - CONDITION AGGRAVATED [None]
  - DYSTHYMIC DISORDER [None]
  - EXCITABILITY [None]
  - MENTAL DISORDER [None]
